FAERS Safety Report 4764831-0 (Version None)
Quarter: 2005Q3

REPORT INFORMATION
  Report Type: 
  Country: None (occurrence: None)
  Receive Date: 20050907
  Receipt Date: 20050826
  Transmission Date: 20060218
  Serious: Yes (Hospitalization)
  Sender: FDA-Public Use
  Company Number: 2005122943

PATIENT
  Age: 55 Year
  Sex: Female

DRUGS (9)
  1. NITROSTAT [Suspect]
     Indication: ANGINA PECTORIS
     Dosage: (PRN), ORAL
     Route: 048
     Dates: start: 19900101
  2. FLAGYL [Suspect]
     Indication: INFLAMMATORY BOWEL DISEASE
     Dates: start: 20040101
  3. LOMOTIL (ATROPINE SULFAE, DIPHENOXYLATE HYDROCHLORIDE) [Concomitant]
  4. BENTYL (DICLOVERINE HYDROCHLORIDE) [Concomitant]
  5. PREMARIN [Concomitant]
  6. SYNTHROID [Concomitant]
  7. LORCET-HD [Concomitant]
  8. LASIX [Concomitant]
  9. NITRO-DUR [Concomitant]

REACTIONS (4)
  - CHOLECYSTECTOMY [None]
  - COLITIS [None]
  - DIFFICULTY IN WALKING [None]
  - WEIGHT INCREASED [None]
